FAERS Safety Report 13618914 (Version 1)
Quarter: 2017Q2

REPORT INFORMATION
  Report Type: Spontaneous
  Country: US (occurrence: US)
  Receive Date: 20170606
  Receipt Date: 20170606
  Transmission Date: 20170830
  Serious: Yes (Death, Hospitalization)
  Sender: FDA-Public Use
  Company Number: None

PATIENT
  Age: 19 Year
  Sex: Male
  Weight: 101.3 kg

DRUGS (5)
  1. METHOTREXATE. [Suspect]
     Active Substance: METHOTREXATE
     Dates: end: 20170508
  2. DAUNORUBICIN [Suspect]
     Active Substance: DAUNORUBICIN
     Dates: end: 20170527
  3. CYTARABINE. [Suspect]
     Active Substance: CYTARABINE
     Dates: end: 20170502
  4. ONCASPAR [Suspect]
     Active Substance: PEGASPARGASE
     Dates: end: 20170506
  5. VINCRISTINE SULFATE. [Suspect]
     Active Substance: VINCRISTINE SULFATE
     Dates: end: 20170527

REACTIONS (18)
  - Oxygen saturation decreased [None]
  - Fear [None]
  - Ventricular tachycardia [None]
  - Dyspnoea [None]
  - Myocardial infarction [None]
  - Mental status changes [None]
  - Sinus tachycardia [None]
  - Blood potassium increased [None]
  - Blood glucose increased [None]
  - Secretion discharge [None]
  - Haemodynamic instability [None]
  - Respiratory failure [None]
  - Hyperhidrosis [None]
  - Ventricular fibrillation [None]
  - Pulse absent [None]
  - Cardiac arrest [None]
  - Pulmonary embolism [None]
  - Cardio-respiratory arrest [None]

NARRATIVE: CASE EVENT DATE: 20170528
